FAERS Safety Report 9960744 (Version 1)
Quarter: 2014Q1

REPORT INFORMATION
  Report Type: Report from Study
  Country: US (occurrence: US)
  Receive Date: 20140305
  Receipt Date: 20140305
  Transmission Date: 20141002
  Serious: Yes (Hospitalization)
  Sender: FDA-Public Use
  Company Number: US-ABBVIE-13P-163-1108235-00

PATIENT
  Sex: Female

DRUGS (10)
  1. HUMIRA [Suspect]
     Indication: CROHN^S DISEASE
     Dates: start: 20121211, end: 201304
  2. HUMIRA [Suspect]
     Dosage: ONCE
     Dates: start: 20130604, end: 20130604
  3. HUMIRA [Suspect]
     Dosage: ONCE
     Dates: start: 20130618, end: 20130618
  4. AZASAN [Concomitant]
     Indication: CROHN^S DISEASE
  5. LISINOPRIL [Concomitant]
     Indication: BLOOD PRESSURE
  6. NORVASC [Concomitant]
     Indication: BLOOD PRESSURE
  7. COUMADIN [Concomitant]
     Indication: DEVICE THERAPY
  8. ESTRACE [Concomitant]
     Indication: HORMONE THERAPY
  9. B 12 [Concomitant]
     Indication: CROHN^S DISEASE
  10. FOLIC ACID [Concomitant]
     Indication: HORMONE THERAPY

REACTIONS (7)
  - Crohn^s disease [Unknown]
  - Chest discomfort [Recovered/Resolved]
  - Tachycardia [Recovering/Resolving]
  - Dehydration [Unknown]
  - Pain of skin [Unknown]
  - Feeling abnormal [Unknown]
  - Mass [Unknown]
